FAERS Safety Report 19502084 (Version 1)
Quarter: 2021Q3

REPORT INFORMATION
  Report Type: Spontaneous
  Country: ES (occurrence: ES)
  Receive Date: 20210707
  Receipt Date: 20210707
  Transmission Date: 20211014
  Serious: Yes (Hospitalization)
  Sender: FDA-Public Use
  Company Number: ES-ACCORD-230672

PATIENT
  Age: 58 Year
  Sex: Male
  Weight: 75 kg

DRUGS (1)
  1. OXALIPLATIN ACCORD [Suspect]
     Active Substance: OXALIPLATIN
     Indication: COLON CANCER
     Dosage: 5 MG / ML CONCENTRATE FOR SOLUTION FOR INFUSION EFG, 1?VIAL OF 20 ML, 85 MG/M2
     Route: 041
     Dates: start: 20210525, end: 20210525

REACTIONS (2)
  - Product preparation issue [Unknown]
  - Medication error [Unknown]

NARRATIVE: CASE EVENT DATE: 20210525
